FAERS Safety Report 20430760 (Version 1)
Quarter: 2022Q1

REPORT INFORMATION
  Report Type: Report from Study
  Country: FR (occurrence: FR)
  Receive Date: 20220204
  Receipt Date: 20220204
  Transmission Date: 20220424
  Serious: Yes (Hospitalization)
  Sender: FDA-Public Use
  Company Number: FR-SERVIER-S21004530

PATIENT

DRUGS (8)
  1. PEGASPARGASE [Suspect]
     Active Substance: PEGASPARGASE
     Indication: Acute lymphocytic leukaemia
     Dosage: 4800 IU, QD ON D12
     Route: 042
     Dates: start: 20210209, end: 20210209
  2. TN UNSPECIFIED [Concomitant]
     Indication: Acute lymphocytic leukaemia
     Dosage: 2 MG, D8, D15, D22, D29
     Route: 042
     Dates: start: 20210205, end: 20210226
  3. TN UNSPECIFIED [Concomitant]
     Indication: Acute lymphocytic leukaemia
     Dosage: 57.5 MG, D8, D15, D22, D29
     Route: 042
     Dates: start: 20210205, end: 20210226
  4. TN UNSPECIFIED [Concomitant]
     Indication: Acute lymphocytic leukaemia
     Dosage: 15 MG, D1
     Route: 037
     Dates: start: 20210129
  5. TN UNSPECIFIED [Concomitant]
     Dosage: 15 MG, D13, D26
     Route: 037
     Dates: start: 20210210, end: 20210224
  6. TN UNSPECIFIED [Concomitant]
     Indication: Acute lymphocytic leukaemia
     Dosage: 15 MG, D13, D26
     Route: 037
     Dates: start: 20210210, end: 20210224
  7. TN UNSPECIFIED [Concomitant]
     Indication: Acute lymphocytic leukaemia
     Dosage: 30 MG, D13, D26
     Route: 037
     Dates: start: 20210210, end: 20210224
  8. TN UNSPECIFIED [Concomitant]
     Indication: Acute lymphocytic leukaemia
     Dosage: 60 MG/M2, D8 TO D28
     Route: 048
     Dates: start: 20210205, end: 20210207

REACTIONS (2)
  - Blood bilirubin increased [Recovered/Resolved]
  - Staphylococcal sepsis [Recovered/Resolved]

NARRATIVE: CASE EVENT DATE: 20210301
